FAERS Safety Report 5329679-7 (Version None)
Quarter: 2007Q2

REPORT INFORMATION
  Report Type: 
  Country: None (occurrence: None)
  Receive Date: 20070521
  Receipt Date: 20070516
  Transmission Date: 20071010
  Serious: Yes (Other)
  Sender: FDA-Public Use
  Company Number: GB-SP-2007-01337

PATIENT
  Sex: Male

DRUGS (3)
  1. IMMUCYST [Suspect]
     Indication: BLADDER CANCER
     Route: 043
     Dates: end: 20070302
  2. IMMUCYST [Suspect]
     Route: 043
     Dates: end: 20070302
  3. WARFARIN [Concomitant]

REACTIONS (4)
  - ARTHRALGIA [None]
  - CONJUNCTIVITIS [None]
  - EYE ABSCESS [None]
  - JOINT SWELLING [None]
